FAERS Safety Report 7367820-5 (Version None)
Quarter: 2011Q1

REPORT INFORMATION
  Report Type: 
  Country: None (occurrence: None)
  Receive Date: 20110322
  Receipt Date: 20110113
  Transmission Date: 20110831
  Serious: Yes (Death)
  Sender: FDA-Public Use
  Company Number: US-BRISTOL-MYERS SQUIBB COMPANY-15485709

PATIENT

DRUGS (1)
  1. BICNU [Suspect]

REACTIONS (1)
  - NEOPLASM MALIGNANT [None]
